FAERS Safety Report 9218972 (Version 1)
Quarter: 2013Q2

REPORT INFORMATION
  Report Type: Spontaneous
  Country: US (occurrence: US)
  Receive Date: 20130409
  Receipt Date: 20130409
  Transmission Date: 20140414
  Serious: Yes (Other)
  Sender: FDA-Public Use
  Company Number: US-PFIZER INC-2013110008

PATIENT
  Age: 58 Year
  Sex: Female
  Weight: 54.42 kg

DRUGS (11)
  1. GABAPENTIN [Suspect]
     Indication: ARTHRITIS
     Dosage: 100 MG, 1X/DAY
     Dates: start: 20130321, end: 20130405
  2. GABAPENTIN [Suspect]
     Indication: MUSCULOSKELETAL PAIN
  3. GABAPENTIN [Suspect]
     Indication: NECK PAIN
  4. VENLAFAXINE HYDROCHLORIDE [Suspect]
     Indication: ARTHRITIS
     Dosage: 75 MG, 1X/DAY
     Dates: start: 20130321, end: 20130405
  5. VENLAFAXINE HYDROCHLORIDE [Suspect]
     Indication: MUSCULOSKELETAL PAIN
  6. VENLAFAXINE HYDROCHLORIDE [Suspect]
     Indication: NECK PAIN
  7. CRESTOR [Suspect]
     Indication: BLOOD CHOLESTEROL INCREASED
     Dosage: UNK
  8. WELCHOL [Concomitant]
     Indication: BLOOD CHOLESTEROL INCREASED
     Dosage: ^3.75 GM, HALF A PACK^, 2X/DAY
  9. XANAX [Concomitant]
     Indication: ANXIETY
     Dosage: 0.5 MG, 1X/DAY
  10. XANAX [Concomitant]
     Indication: SLEEP DISORDER
  11. ZANTAC [Concomitant]
     Indication: HYPERSENSITIVITY
     Dosage: 10 MG, 1X/DAY

REACTIONS (9)
  - Headache [Not Recovered/Not Resolved]
  - Head discomfort [Not Recovered/Not Resolved]
  - Dizziness [Not Recovered/Not Resolved]
  - Muscle disorder [Unknown]
  - Paraesthesia [Not Recovered/Not Resolved]
  - Pain [Not Recovered/Not Resolved]
  - Feeling abnormal [Not Recovered/Not Resolved]
  - Malaise [Not Recovered/Not Resolved]
  - Agitation [Not Recovered/Not Resolved]
